FAERS Safety Report 10480515 (Version 2)
Quarter: 2014Q4

REPORT INFORMATION
  Report Type: Spontaneous
  Country: US (occurrence: US)
  Receive Date: 20140929
  Receipt Date: 20141013
  Transmission Date: 20150528
  Serious: Yes (Disabling)
  Sender: FDA-Public Use
  Company Number: US-009507513-1409USA011730

PATIENT
  Age: 17 Year
  Sex: Female
  Weight: 49.89 kg

DRUGS (2)
  1. NEXPLANON [Suspect]
     Active Substance: ETONOGESTREL
     Indication: CONTRACEPTION
     Dosage: 1 ROD UP TO 3 YEARS, IN LEFT ARM
     Route: 059
     Dates: start: 20140910
  2. ALEVE [Concomitant]
     Active Substance: NAPROXEN SODIUM
     Dosage: AS NEEDED

REACTIONS (5)
  - Implant site bruising [Recovered/Resolved]
  - Implant site pain [Recovered/Resolved]
  - Mobility decreased [Recovered/Resolved]
  - Poor quality sleep [Unknown]
  - Rash macular [Unknown]

NARRATIVE: CASE EVENT DATE: 20140910
